FAERS Safety Report 9096592 (Version 2)
Quarter: 2013Q1

REPORT INFORMATION
  Report Type: Spontaneous
  Country: IN (occurrence: IN)
  Receive Date: 20130211
  Receipt Date: 20130212
  Transmission Date: 20140127
  Serious: Yes (Hospitalization)
  Sender: FDA-Public Use
  Company Number: PHHY2013IN011109

PATIENT
  Age: 62 Year
  Sex: Male

DRUGS (1)
  1. OLANZAPINE [Suspect]
     Indication: SCHIZOPHRENIA, PARANOID TYPE

REACTIONS (6)
  - Camptocormia [Recovered/Resolved]
  - Back pain [Recovered/Resolved]
  - Posture abnormal [Recovered/Resolved]
  - Myalgia [Recovered/Resolved]
  - Muscle necrosis [Recovered/Resolved]
  - Muscle oedema [Recovered/Resolved]
